FAERS Safety Report 5708649-0 (Version None)
Quarter: 2008Q2

REPORT INFORMATION
  Report Type: 
  Country: None (occurrence: None)
  Receive Date: 20080414
  Receipt Date: 20080414
  Transmission Date: 20081010
  Serious: Yes (Hospitalization)
  Sender: FDA-Public Use
  Company Number: None

PATIENT
  Sex: Female
  Weight: 77.5651 kg

DRUGS (1)
  1. ENBREL [Suspect]
     Indication: RHEUMATOID ARTHRITIS
     Dosage: 25 MG WEEKLY SQ
     Route: 058
     Dates: start: 20080107, end: 20080331

REACTIONS (5)
  - ABDOMINAL PAIN [None]
  - HEPATIC ENZYME INCREASED [None]
  - HEPATOCELLULAR INJURY [None]
  - NAUSEA [None]
  - VOMITING [None]
